FAERS Safety Report 9543014 (Version 1)
Quarter: 2013Q2

REPORT INFORMATION
  Report Type: Spontaneous
  Country: US (occurrence: None)
  Receive Date: 20130524
  Receipt Date: 20130524
  Transmission Date: 20140414
  Serious: Yes (Other)
  Sender: FDA-Public Use
  Company Number: PHEH2012US025252

PATIENT
  Age: 57 Year
  Sex: Female

DRUGS (13)
  1. GILENYA (FINGOLIMOD) CAPSULE, 0.5MG [Suspect]
  2. CARDIZEM (DILTIAZEM HYDROCHLORIDE) [Concomitant]
  3. DILTIAZEM [Concomitant]
  4. WELLBUTRIN XL (BOPROPION HYDROCHLORIDE) [Concomitant]
  5. METOPROLOL (METOPROLOL [Concomitant]
  6. WARFARIN SODIUM (WARFARIN SODIUM) [Concomitant]
  7. TIZANIDINE HYDROCHLORIDE (TIZANIDINE HYDROCHLORIDE) [Concomitant]
  8. CARBAMAZEPINE (CARBAMAZEPINE) [Concomitant]
  9. LEVOTHYROXINE (LEVOTHYROXINE) [Concomitant]
  10. CYTOMEL (LIOTHYRONINE SODIUM) [Concomitant]
  11. VITAMIN C [Concomitant]
  12. VITAMIN D (ERGOCALCIFEROL) [Concomitant]
  13. TETANUS TOXOID (TETANUS VACCINE) [Concomitant]

REACTIONS (2)
  - Dental caries [None]
  - Dry mouth [None]
